FAERS Safety Report 7296594-1 (Version None)
Quarter: 2011Q1

REPORT INFORMATION
  Report Type: 
  Country: None (occurrence: None)
  Receive Date: 20110216
  Receipt Date: 20110207
  Transmission Date: 20110831
  Serious: Yes (Other)
  Sender: FDA-Public Use
  Company Number: PHHO2010DE19645

PATIENT
  Sex: Female

DRUGS (3)
  1. VITAMIN D [Concomitant]
  2. ZOLEDRONATE [Suspect]
     Indication: METASTASES TO BONE
     Dosage: 4MG
     Route: 042
     Dates: start: 20090306, end: 20101029
  3. CALCIUM [Concomitant]

REACTIONS (2)
  - OSTEONECROSIS OF JAW [None]
  - TOOTH EXTRACTION [None]
